FAERS Safety Report 21218074 (Version 1)
Quarter: 2022Q3

REPORT INFORMATION
  Report Type: Report from Study
  Country: MX (occurrence: MX)
  Receive Date: 20220816
  Receipt Date: 20220816
  Transmission Date: 20221027
  Serious: Yes (Other)
  Sender: FDA-Public Use
  Company Number: MX-BRISTOL-MYERS SQUIBB COMPANY-2022-086839

PATIENT
  Age: 51 Year
  Sex: Female
  Weight: 67 kg

DRUGS (1)
  1. ORENCIA [Suspect]
     Active Substance: ABATACEPT
     Indication: Rheumatoid arthritis
     Route: 058
     Dates: start: 20170601

REACTIONS (3)
  - COVID-19 [Recovering/Resolving]
  - Bone pain [Unknown]
  - Malaise [Unknown]

NARRATIVE: CASE EVENT DATE: 20220720
